FAERS Safety Report 7361891-8 (Version None)
Quarter: 2011Q1

REPORT INFORMATION
  Report Type: 
  Country: None (occurrence: None)
  Receive Date: 20110318
  Receipt Date: 20110310
  Transmission Date: 20110831
  Serious: Yes (Other)
  Sender: FDA-Public Use
  Company Number: US-PFIZER INC-HQWYE208017JUL04

PATIENT
  Sex: Female
  Weight: 90 kg

DRUGS (3)
  1. PROVERA [Suspect]
     Indication: HORMONE REPLACEMENT THERAPY
     Dosage: 2.5 MG,
     Route: 048
     Dates: start: 19910101, end: 20000101
  2. PREMARIN [Suspect]
     Indication: HORMONE REPLACEMENT THERAPY
     Dosage: 0.625 MG DAILY TO 1.25 MG DAILY
     Route: 048
     Dates: start: 19910101, end: 20000101
  3. HYTRIN [Concomitant]
     Indication: BLOOD PRESSURE
     Dosage: UNK
     Dates: start: 19900101

REACTIONS (3)
  - BREAST CANCER FEMALE [None]
  - ARTHRALGIA [None]
  - MYALGIA [None]
